FAERS Safety Report 9832364 (Version 2)
Quarter: 2014Q1

REPORT INFORMATION
  Report Type: Spontaneous
  Country: US (occurrence: US)
  Receive Date: 20140121
  Receipt Date: 20140127
  Transmission Date: 20141002
  Serious: Yes (Death, Hospitalization)
  Sender: FDA-Public Use
  Company Number: US-BAXTER-2014BAX002392

PATIENT
  Age: 79 Year
  Sex: Male

DRUGS (1)
  1. 0.9% SODIUM CHLORIDE INJECTION [Suspect]
     Indication: CATHETER MANAGEMENT
     Route: 042
     Dates: start: 20130903, end: 20131004

REACTIONS (2)
  - Ventricular tachycardia [Fatal]
  - Cardiac failure [Unknown]
